FAERS Safety Report 4931493-9 (Version None)
Quarter: 2006Q1

REPORT INFORMATION
  Report Type: 
  Country: None (occurrence: None)
  Receive Date: 20060118
  Receipt Date: 20050930
  Transmission Date: 20060701
  Serious: Yes (Other)
  Sender: FDA-Public Use
  Company Number: US-JNJFOC-20050904339

PATIENT
  Sex: Female

DRUGS (1)
  1. DOXIL [Suspect]
     Indication: SARCOMA
     Dosage: INTRAVENOUS
     Route: 042

REACTIONS (1)
  - SARCOMA [None]
